FAERS Safety Report 17991468 (Version 1)
Quarter: 2020Q3

REPORT INFORMATION
  Report Type: Spontaneous
  Country: CZ (occurrence: CZ)
  Receive Date: 20200707
  Receipt Date: 20200707
  Transmission Date: 20201103
  Serious: Yes (Other)
  Sender: FDA-Public Use
  Company Number: NVSC2020CZ188141

PATIENT
  Age: 42 Year
  Sex: Female

DRUGS (1)
  1. METHOTREXATE. [Suspect]
     Active Substance: METHOTREXATE
     Indication: PRODUCT USED FOR UNKNOWN INDICATION
     Dosage: UNK
     Route: 065

REACTIONS (7)
  - Arthralgia [Recovering/Resolving]
  - Immunodeficiency [Recovering/Resolving]
  - Tonsillitis [Recovering/Resolving]
  - Natural killer cell count decreased [Recovering/Resolving]
  - Oral herpes [Recovering/Resolving]
  - Tonsillitis [Recovered/Resolved]
  - Catarrh [Recovering/Resolving]

NARRATIVE: CASE EVENT DATE: 20190121
